FAERS Safety Report 17796355 (Version 3)
Quarter: 2020Q2

REPORT INFORMATION
  Report Type: Spontaneous
  Country: US (occurrence: US)
  Receive Date: 20200517
  Receipt Date: 20200603
  Transmission Date: 20200714
  Serious: No
  Sender: FDA-Public Use
  Company Number: US-BLUEPRINT MEDICINES CORPORATION-SP-US-2020-000587

PATIENT
  Age: 81 Year
  Sex: Female

DRUGS (2)
  1. AYVAKIT [Suspect]
     Active Substance: AVAPRITINIB
  2. AYVAKIT [Suspect]
     Active Substance: AVAPRITINIB
     Indication: SYSTEMIC MASTOCYTOSIS
     Route: 048
     Dates: start: 20200504, end: 20200526

REACTIONS (13)
  - Movement disorder [Unknown]
  - Speech disorder [Unknown]
  - Balance disorder [Unknown]
  - Gait disturbance [Recovering/Resolving]
  - Feeling abnormal [Unknown]
  - Dizziness [Recovering/Resolving]
  - Fatigue [Unknown]
  - Nausea [Recovering/Resolving]
  - Off label use [Not Recovered/Not Resolved]
  - Depression [Unknown]
  - Confusional state [Unknown]
  - Diarrhoea [Unknown]
  - Mental impairment [Recovering/Resolving]

NARRATIVE: CASE EVENT DATE: 202005
